FAERS Safety Report 5873670-9 (Version None)
Quarter: 2008Q3

REPORT INFORMATION
  Report Type: 
  Country: None (occurrence: None)
  Receive Date: 20080908
  Receipt Date: 20080902
  Transmission Date: 20090109
  Serious: Yes (Other)
  Sender: FDA-Public Use
  Company Number: A0746231A

PATIENT
  Sex: Female

DRUGS (6)
  1. LAMOTRIGINE [Suspect]
     Dosage: 200MG PER DAY
  2. CLONAZEPAM [Concomitant]
  3. ATIVAN [Concomitant]
  4. UNKNOWN MEDICATION [Concomitant]
  5. INDERAL [Concomitant]
  6. ALDACTONE [Concomitant]

REACTIONS (2)
  - ABORTION INDUCED [None]
  - DRUG EXPOSURE DURING PREGNANCY [None]
